FAERS Safety Report 7272807-7 (Version None)
Quarter: 2010Q4

REPORT INFORMATION
  Report Type: 
  Country: None (occurrence: None)
  Receive Date: 20101201
  Receipt Date: 20100610
  Transmission Date: 20110411
  Serious: Yes (Other)
  Sender: FDA-Public Use
  Company Number: 307169

PATIENT
  Age: 35 Year
  Sex: Female
  Weight: 83.9 kg

DRUGS (2)
  1. LEVEMIR [Suspect]
     Indication: TYPE 2 DIABETES MELLITUS
     Dosage: QPM, SUBCUTANEOUS, 30 U, QPM, SUBCUTANEOUS
     Route: 058
     Dates: start: 20090101
  2. NOVOLOG MIX 70/30 [Suspect]
     Indication: INSULIN-REQUIRING TYPE 2 DIABETES MELLITUS
     Dosage: BID, SUBCUTANEOUS, 30 U, BID, SUBCUTANEOUS
     Route: 058
     Dates: start: 20100101

REACTIONS (2)
  - BLOOD GLUCOSE DECREASED [None]
  - HYPOGLYCAEMIC SEIZURE [None]
